FAERS Safety Report 15073187 (Version 1)
Quarter: 2018Q2

REPORT INFORMATION
  Report Type: Spontaneous
  Country: US (occurrence: US)
  Receive Date: 20180627
  Receipt Date: 20180627
  Transmission Date: 20180711
  Serious: No
  Sender: FDA-Public Use
  Company Number: US-ASTRAZENECA-2018SE72160

PATIENT
  Sex: Male

DRUGS (6)
  1. DULOXETINE. [Concomitant]
     Active Substance: DULOXETINE
     Indication: NERVE INJURY
  2. PULMICORT FLEXHALER [Suspect]
     Active Substance: BUDESONIDE
     Route: 055
  3. PROAIR HFA [Concomitant]
     Active Substance: ALBUTEROL SULFATE
  4. PREDNISONE. [Concomitant]
     Active Substance: PREDNISONE
     Dosage: GTT
  5. LORATADINE. [Concomitant]
     Active Substance: LORATADINE
  6. DULOXETINE. [Concomitant]
     Active Substance: DULOXETINE
     Indication: ANTICOAGULANT THERAPY

REACTIONS (3)
  - Memory impairment [Unknown]
  - Intentional product misuse [Unknown]
  - Device malfunction [Unknown]
